FAERS Safety Report 12601559 (Version 4)
Quarter: 2016Q3

REPORT INFORMATION
  Report Type: Report from Study
  Country: CA (occurrence: CA)
  Receive Date: 20160728
  Receipt Date: 20160926
  Transmission Date: 20161109
  Serious: Yes (Hospitalization, Other)
  Sender: FDA-Public Use
  Company Number: PHHY2013CA096983

PATIENT
  Age: 66 Year
  Sex: Female

DRUGS (2)
  1. SANDOSTATIN [Suspect]
     Active Substance: OCTREOTIDE ACETATE
     Indication: NEUROENDOCRINE TUMOUR
     Dosage: 100 UG, QID
     Route: 058
     Dates: start: 20130723
  2. SANDOSTATIN LAR DEPOT [Suspect]
     Active Substance: OCTREOTIDE ACETATE
     Indication: NEUROENDOCRINE TUMOUR
     Dosage: 60 MG, QMO
     Route: 030
     Dates: start: 20130916

REACTIONS (8)
  - Haematochezia [Unknown]
  - Wound [Unknown]
  - Localised infection [Unknown]
  - Injection site pruritus [Unknown]
  - Vomiting [Unknown]
  - Blood pressure systolic increased [Unknown]
  - Abdominal pain lower [Unknown]
  - Osteomyelitis [Unknown]

NARRATIVE: CASE EVENT DATE: 2016
